FAERS Safety Report 16683966 (Version 1)
Quarter: 2019Q3

REPORT INFORMATION
  Report Type: Spontaneous
  Country: US (occurrence: US)
  Receive Date: 20190808
  Receipt Date: 20190808
  Transmission Date: 20191004
  Serious: No
  Sender: FDA-Public Use
  Company Number: US-BAYER-2019-144235

PATIENT
  Age: 61 Year
  Sex: Female

DRUGS (2)
  1. ESTRADIOL. [Suspect]
     Active Substance: ESTRADIOL
     Route: 062
  2. PROGESTIN [Concomitant]
     Active Substance: PROGESTERONE

REACTIONS (2)
  - Incorrect dose administered [None]
  - Product adhesion issue [None]
